FAERS Safety Report 17600151 (Version 1)
Quarter: 2020Q1

REPORT INFORMATION
  Report Type: Spontaneous
  Country: AR (occurrence: AR)
  Receive Date: 20200330
  Receipt Date: 20200330
  Transmission Date: 20200409
  Serious: Yes (Other)
  Sender: FDA-Public Use
  Company Number: AR-MYLANLABS-2020M1032453

PATIENT
  Age: 26 Year
  Sex: Male

DRUGS (1)
  1. LAPENAX [Suspect]
     Active Substance: CLOZAPINE
     Indication: PRODUCT USED FOR UNKNOWN INDICATION
     Dosage: UNK
     Dates: start: 201803

REACTIONS (3)
  - Neutropenia [Recovered/Resolved]
  - Lymphocyte count increased [Recovered/Resolved]
  - Monocyte count increased [Recovering/Resolving]

NARRATIVE: CASE EVENT DATE: 20200321
